FAERS Safety Report 8368310-3 (Version None)
Quarter: 2012Q2

REPORT INFORMATION
  Report Type: 
  Country: None (occurrence: None)
  Receive Date: 20120517
  Receipt Date: 20120516
  Transmission Date: 20120825
  Serious: Yes (Other)
  Sender: FDA-Public Use
  Company Number: PL-BAYER-2012-048000

PATIENT
  Age: 65 Year
  Sex: Male

DRUGS (1)
  1. GADAVIST [Suspect]
     Indication: NUCLEAR MAGNETIC RESONANCE IMAGING
     Dosage: 9.5 ML, ONCE
     Route: 042
     Dates: start: 20120515, end: 20120515

REACTIONS (7)
  - DRY MOUTH [None]
  - HEART RATE DECREASED [None]
  - DYSPNOEA [None]
  - COLD SWEAT [None]
  - OROPHARYNGEAL PAIN [None]
  - APNOEA [None]
  - LARYNGOSPASM [None]
